FAERS Safety Report 6698542-1 (Version None)
Quarter: 2010Q2

REPORT INFORMATION
  Report Type: 
  Country: None (occurrence: None)
  Receive Date: 20100427
  Receipt Date: 20100416
  Transmission Date: 20101027
  Serious: Yes (Hospitalization)
  Sender: FDA-Public Use
  Company Number: TR-AMGEN-US408334

PATIENT
  Sex: Female
  Weight: 80 kg

DRUGS (3)
  1. ENBREL [Suspect]
     Indication: RHEUMATOID ARTHRITIS
     Route: 058
     Dates: start: 20051001
  2. LANSOPRAZOLE [Concomitant]
     Route: 065
  3. PRAVACHOL [Concomitant]
     Route: 065
     Dates: start: 20090801

REACTIONS (1)
  - MONONEUROPATHY MULTIPLEX [None]
